FAERS Safety Report 16129249 (Version 4)
Quarter: 2020Q1

REPORT INFORMATION
  Report Type: Spontaneous
  Country: US (occurrence: US)
  Receive Date: 20190328
  Receipt Date: 20200312
  Transmission Date: 20200409
  Serious: Yes (Other)
  Sender: FDA-Public Use
  Company Number: US-VIFOR (INTERNATIONAL) INC.-VIT-2019-02550

PATIENT
  Age: 67 Year
  Sex: Female

DRUGS (11)
  1. BASAGLAR KWIKPEN [Concomitant]
     Active Substance: INSULIN GLARGINE
  2. VELTASSA [Suspect]
     Active Substance: PATIROMER
     Indication: HYPERKALAEMIA
     Route: 048
     Dates: start: 20190316
  3. AMLODIPINE BESYLATE. [Concomitant]
     Active Substance: AMLODIPINE BESYLATE
  4. NOVOLOG [Concomitant]
     Active Substance: INSULIN ASPART
  5. TRADJENTA [Concomitant]
     Active Substance: LINAGLIPTIN
  6. AURYXIA [Concomitant]
     Active Substance: TETRAFERRIC TRICITRATE DECAHYDRATE
  7. UBIQUINOL [Concomitant]
     Active Substance: UBIQUINOL
  8. VITAMIN B12 [Concomitant]
     Active Substance: CYANOCOBALAMIN
  9. LISINOPRIL. [Concomitant]
     Active Substance: LISINOPRIL
  10. MIRALAX [Concomitant]
     Active Substance: POLYETHYLENE GLYCOL 3350
  11. VITAMIN D [Concomitant]
     Active Substance: VITAMIN D NOS

REACTIONS (7)
  - Cataract operation [Unknown]
  - Renal disorder [Unknown]
  - Ill-defined disorder [Unknown]
  - Diabetes mellitus [Unknown]
  - Diarrhoea [Unknown]
  - Constipation [Unknown]
  - Thyroid operation [Unknown]

NARRATIVE: CASE EVENT DATE: 2019
